FAERS Safety Report 6744081-9 (Version None)
Quarter: 2010Q2

REPORT INFORMATION
  Report Type: 
  Country: None (occurrence: None)
  Receive Date: 20100527
  Receipt Date: 20100519
  Transmission Date: 20101027
  Serious: Yes (Hospitalization)
  Sender: FDA-Public Use
  Company Number: A0861073A

PATIENT
  Age: 12 Year
  Sex: Female
  Weight: 47.8 kg

DRUGS (10)
  1. PAZOPANIB [Suspect]
     Indication: NEOPLASM
     Dosage: 450MGM2 PER DAY
     Route: 048
     Dates: start: 20100315
  2. AMLODIPINE [Suspect]
  3. BACTRIM [Concomitant]
  4. LIDOCAINE [Concomitant]
  5. LUPRON [Concomitant]
  6. MS CONTIN [Concomitant]
  7. MORPHINE SULFATE [Concomitant]
  8. ZOFRAN [Concomitant]
  9. TYLENOL (CAPLET) [Concomitant]
  10. POTASSIUM [Concomitant]

REACTIONS (9)
  - ANAEMIA [None]
  - BLOOD CREATININE INCREASED [None]
  - HYPERKALAEMIA [None]
  - HYPERMAGNESAEMIA [None]
  - HYPOALBUMINAEMIA [None]
  - HYPOKALAEMIA [None]
  - HYPOTHYROIDISM [None]
  - OEDEMA [None]
  - RENAL FAILURE [None]
